FAERS Safety Report 4772488-8 (Version None)
Quarter: 2005Q3

REPORT INFORMATION
  Report Type: 
  Country: None (occurrence: None)
  Receive Date: 20050919
  Receipt Date: 20050919
  Transmission Date: 20060218
  Serious: Yes (Hospitalization)
  Sender: FDA-Public Use
  Company Number: None

PATIENT
  Age: 72 Year
  Sex: Female
  Weight: 79.7 kg

DRUGS (23)
  1. TARCEVA [Suspect]
     Indication: NON-SMALL CELL LUNG CANCER
     Dosage: 150MG PO QD
     Route: 048
     Dates: start: 20050810, end: 20050815
  2. TYLENOL [Concomitant]
  3. BETAMETHASONE [Concomitant]
  4. DIPROPIONATE [Concomitant]
  5. CALCIUM GLUCONATE [Concomitant]
  6. CLONIDINE HCL [Concomitant]
  7. CLOTRIMAZOLE 1% CREAM [Concomitant]
  8. COLACE [Concomitant]
  9. LEVOXYL [Concomitant]
  10. MAGNESIUM SULFATE [Concomitant]
  11. LOPRESSOR [Concomitant]
  12. NEUTRAPHOS K [Concomitant]
  13. POTASSIUM CHLORIDE [Concomitant]
  14. TRIAMCINOLONE ACETONIDE [Concomitant]
  15. ZOCOR [Concomitant]
  16. COMPAZINE [Concomitant]
  17. LOVENOX [Concomitant]
  18. TRAMADOL [Concomitant]
  19. AVAPRO [Concomitant]
  20. SINGULAIR [Concomitant]
  21. ADVAIR DISKUS 100/50 [Concomitant]
  22. CALTRATE + D [Concomitant]
  23. NEXIUM [Concomitant]

REACTIONS (8)
  - DISEASE PROGRESSION [None]
  - DYSPNOEA EXERTIONAL [None]
  - METABOLIC ACIDOSIS [None]
  - OXYGEN SATURATION DECREASED [None]
  - PLEURAL EFFUSION [None]
  - PULMONARY EMBOLISM [None]
  - PULMONARY HILUM MASS [None]
  - SCAN ABNORMAL [None]
